FAERS Safety Report 4408821-6 (Version None)
Quarter: 2004Q3

REPORT INFORMATION
  Report Type: 
  Country: None (occurrence: None)
  Receive Date: 20040727
  Receipt Date: 20040213
  Transmission Date: 20050211
  Serious: Yes (Other)
  Sender: FDA-Public Use
  Company Number: JP-ROCHE-358909

PATIENT

DRUGS (16)
  1. ROCALTROL [Suspect]
     Indication: HYPERPARATHYROIDISM SECONDARY
     Route: 042
     Dates: start: 20031116
  2. ALLOID [Concomitant]
  3. ALFAROL [Concomitant]
  4. MICARDIS [Concomitant]
  5. CONIEL [Concomitant]
  6. PARIET [Concomitant]
     Route: 048
  7. MYSLEE [Concomitant]
     Route: 048
  8. CALCIUM CARBONATE [Concomitant]
     Route: 048
  9. ASPIRIN [Concomitant]
     Route: 048
  10. NICHISTATE [Concomitant]
     Route: 048
  11. PENLES [Concomitant]
     Dosage: DOSE FORM: SHEETS.
  12. SENNA [Concomitant]
     Route: 048
  13. NITRODERM [Concomitant]
     Dosage: DOSE FORM: SHEETS:
  14. NIFELAT [Concomitant]
     Route: 048
  15. RENAGEL [Concomitant]
     Route: 048
  16. PL [Concomitant]

REACTIONS (2)
  - CONVULSION [None]
  - DISCOMFORT [None]
